FAERS Safety Report 8927080 (Version 3)
Quarter: 2012Q4

REPORT INFORMATION
  Report Type: 
  Country: SE (occurrence: SE)
  Receive Date: 20121127
  Receipt Date: 20121226
  Transmission Date: 20130627
  Serious: Yes (Other)
  Sender: FDA-Public Use
  Company Number: SE-AMGEN-SWESP2012075585

PATIENT
  Age: 81 Year
  Sex: Male

DRUGS (7)
  1. NPLATE [Suspect]
     Indication: IDIOPATHIC THROMBOCYTOPENIC PURPURA
     Dosage: 500 UNK, qwk
     Route: 058
     Dates: start: 20111216, end: 20121123
  2. NPLATE [Suspect]
  3. RITUXIMAB [Concomitant]
     Dosage: UNK
     Dates: start: 201205, end: 201210
  4. CHEMOTHERAPEUTICS [Concomitant]
     Indication: CHRONIC LYMPHOCYTIC LEUKAEMIA
  5. COCILLANA-ETYFIN                   /00223001/ [Concomitant]
     Indication: COUGH
  6. BACTRIM [Concomitant]
     Indication: PNEUMOCYSTIS JIROVECI INFECTION
     Route: 048
  7. VALACICLOVIR [Concomitant]

REACTIONS (3)
  - Therapeutic response decreased [Unknown]
  - Cough [Unknown]
  - Pneumocystis jiroveci infection [Unknown]
